FAERS Safety Report 13375007 (Version 1)
Quarter: 2017Q1

REPORT INFORMATION
  Report Type: Spontaneous
  Country: JP (occurrence: JP)
  Receive Date: 20170327
  Receipt Date: 20170327
  Transmission Date: 20170429
  Serious: Yes (Other)
  Sender: FDA-Public Use
  Company Number: JP-BAYER-2017-053498

PATIENT
  Sex: Male
  Weight: 1.08 kg

DRUGS (3)
  1. BAYASPIRIN 100 MG [Suspect]
     Active Substance: ASPIRIN
     Route: 064
  2. WARFARIN POTASSIUM [Concomitant]
     Active Substance: WARFARIN POTASSIUM
     Route: 064
  3. HEPARIN [Concomitant]
     Active Substance: HEPARIN SODIUM
     Route: 064

REACTIONS (8)
  - Placental transfusion syndrome [None]
  - Foetal anaemia [None]
  - Premature baby [None]
  - Foetal distress syndrome [None]
  - Nonreassuring foetal heart rate pattern [None]
  - Low birth weight baby [None]
  - Apgar score low [None]
  - Foetal exposure timing unspecified [Recovered/Resolved]
